FAERS Safety Report 7233885-4 (Version None)
Quarter: 2011Q1

REPORT INFORMATION
  Report Type: 
  Country: None (occurrence: None)
  Receive Date: 20110119
  Receipt Date: 20100401
  Transmission Date: 20110831
  Serious: Yes (Other)
  Sender: FDA-Public Use
  Company Number: US-TEVA-225142USA

PATIENT
  Sex: Female

DRUGS (3)
  1. INTERFERON BETA NOS [Suspect]
     Indication: MULTIPLE SCLEROSIS
     Route: 030
  2. COPAXONE [Suspect]
     Indication: MULTIPLE SCLEROSIS
     Route: 058
  3. BETASERON [Suspect]
     Indication: MULTIPLE SCLEROSIS
     Dates: start: 19950101, end: 19980101

REACTIONS (2)
  - SUICIDAL IDEATION [None]
  - DEPRESSION [None]
